FAERS Safety Report 5811453-6 (Version None)
Quarter: 2008Q3

REPORT INFORMATION
  Report Type: 
  Country: None (occurrence: None)
  Receive Date: 20080707
  Receipt Date: 20080624
  Transmission Date: 20090109
  Serious: Yes (Death)
  Sender: FDA-Public Use
  Company Number: 200813715

PATIENT

DRUGS (1)
  1. RHOPHYLAC [Suspect]
     Indication: PROPHYLAXIS AGAINST RH ISOIMMUNISATION
     Dosage: 300 UG ONCE
     Dates: start: 20080212, end: 20080212

REACTIONS (6)
  - CAESAREAN SECTION [None]
  - DRUG EXPOSURE DURING PREGNANCY [None]
  - FOETAL HEART RATE DECREASED [None]
  - HYDROPS FOETALIS [None]
  - MATERNAL DRUGS AFFECTING FOETUS [None]
  - RHESUS HAEMOLYTIC DISEASE OF NEWBORN [None]
